FAERS Safety Report 6931378-2 (Version None)
Quarter: 2010Q3

REPORT INFORMATION
  Report Type: 
  Country: None (occurrence: None)
  Receive Date: 20100819
  Receipt Date: 20100217
  Transmission Date: 20110219
  Serious: No
  Sender: FDA-Public Use
  Company Number: US-BRISTOL-MYERS SQUIBB COMPANY-14924765

PATIENT

DRUGS (1)
  1. ZERIT [Suspect]
     Route: 048

REACTIONS (1)
  - EXPIRED DRUG ADMINISTERED [None]
